FAERS Safety Report 4404998-7 (Version None)
Quarter: 2004Q3

REPORT INFORMATION
  Report Type: 
  Country: None (occurrence: None)
  Receive Date: 20040716
  Receipt Date: 20040706
  Transmission Date: 20050211
  Serious: Yes (Hospitalization)
  Sender: FDA-Public Use
  Company Number: 2004222118US

PATIENT
  Age: 42 Year
  Sex: Female

DRUGS (10)
  1. SOLU-MEDROL [Suspect]
     Dates: start: 20040121, end: 20040127
  2. DELTASONE [Suspect]
     Dates: start: 20040120
  3. REBIF [Concomitant]
  4. SYNTHROID [Concomitant]
  5. CALCIUM [Concomitant]
  6. MULTIVITAMINS (PANTHENOL, RETINOL, ERGOCALCIFEROL) [Concomitant]
  7. BACLOFEN [Concomitant]
  8. AMANTADINE (AMANTADINE) [Concomitant]
  9. REMERON [Concomitant]
  10. ACTIVELLE [Concomitant]

REACTIONS (5)
  - BLOOD PRESSURE INCREASED [None]
  - BLOOD TRIGLYCERIDES INCREASED [None]
  - DIABETIC KETOACIDOSIS [None]
  - HEART RATE INCREASED [None]
  - VISION BLURRED [None]
